FAERS Safety Report 7531201-1 (Version None)
Quarter: 2011Q2

REPORT INFORMATION
  Report Type: 
  Country: None (occurrence: None)
  Receive Date: 20110527
  Receipt Date: 20110518
  Transmission Date: 20111010
  Serious: Yes (Other)
  Sender: FDA-Public Use
  Company Number: 2011SP023336

PATIENT
  Sex: Female

DRUGS (1)
  1. LORATADINE [Suspect]
     Indication: RHINITIS ALLERGIC

REACTIONS (3)
  - DRUG INEFFECTIVE [None]
  - PHARYNGEAL OEDEMA [None]
  - OROPHARYNGEAL PAIN [None]
